FAERS Safety Report 16886720 (Version 64)
Quarter: 2024Q1

REPORT INFORMATION
  Report Type: Spontaneous
  Country: CA (occurrence: CA)
  Receive Date: 20191004
  Receipt Date: 20240318
  Transmission Date: 20240410
  Serious: Yes (Death, Life-Threatening, Hospitalization, Disabling, Congenital Anomaly, Other)
  Sender: FDA-Public Use
  Company Number: CA-ABBVIE-19K-028-2946845-00

PATIENT
  Age: 44 Year
  Sex: Female
  Weight: 70 kg

DRUGS (35)
  1. HUMIRA [Suspect]
     Active Substance: ADALIMUMAB
     Indication: Rheumatoid arthritis
     Route: 058
  2. HUMIRA [Suspect]
     Active Substance: ADALIMUMAB
     Indication: Psoriatic arthropathy
     Route: 058
  3. HUMIRA [Suspect]
     Active Substance: ADALIMUMAB
     Indication: Product used for unknown indication
     Route: 058
  4. CODEINE [Concomitant]
     Active Substance: CODEINE
     Indication: Pain
  5. IBUPROFEN [Concomitant]
     Active Substance: IBUPROFEN
     Indication: Product used for unknown indication
  6. PANTOPRAZOLE SODIUM [Concomitant]
     Active Substance: PANTOPRAZOLE SODIUM
     Indication: Product used for unknown indication
  7. DESOGESTREL\ETHINYL ESTRADIOL [Concomitant]
     Active Substance: DESOGESTREL\ETHINYL ESTRADIOL
     Indication: Product used for unknown indication
  8. ZOPICLONE [Concomitant]
     Active Substance: ZOPICLONE
     Indication: Product used for unknown indication
     Route: 048
  9. ZOPICLONE [Concomitant]
     Active Substance: ZOPICLONE
     Indication: Product used for unknown indication
     Route: 048
  10. MARVELON [Concomitant]
     Active Substance: DESOGESTREL\ETHINYL ESTRADIOL
     Indication: Product used for unknown indication
     Route: 048
  11. ACETAMINOPHEN\CODEINE PHOSPHATE [Concomitant]
     Active Substance: ACETAMINOPHEN\CODEINE PHOSPHATE
     Indication: Product used for unknown indication
  12. CAFFEINE CITRATE [Concomitant]
     Active Substance: CAFFEINE CITRATE
     Indication: Product used for unknown indication
  13. Atasol [Concomitant]
     Indication: Product used for unknown indication
  14. LORAZEPAM [Concomitant]
     Active Substance: LORAZEPAM
     Indication: Product used for unknown indication
  15. LISINOPRIL [Concomitant]
     Active Substance: LISINOPRIL
     Indication: Product used for unknown indication
  16. CAFFEINE [Concomitant]
     Active Substance: CAFFEINE
     Indication: Product used for unknown indication
  17. DESOGESTREL [Concomitant]
     Active Substance: DESOGESTREL
     Indication: Product used for unknown indication
  18. LISINOPRIL [Concomitant]
     Active Substance: LISINOPRIL
     Indication: Product used for unknown indication
  19. QUETIAPINE [Concomitant]
     Active Substance: QUETIAPINE
     Indication: Product used for unknown indication
  20. ACETAMINOPHEN AND CAFFEINE [Concomitant]
     Active Substance: ACETAMINOPHEN\CAFFEINE
     Indication: Product used for unknown indication
     Route: 065
  21. ACETAMINOPHEN\CAFFEINE\CODEINE PHOSPHATE [Concomitant]
     Active Substance: ACETAMINOPHEN\CAFFEINE\CODEINE PHOSPHATE
     Indication: Product used for unknown indication
  22. ETHINYL ESTRADIOL [Concomitant]
     Active Substance: ETHINYL ESTRADIOL
     Indication: Pain
  23. ERYTHROMYCIN [Concomitant]
     Active Substance: ERYTHROMYCIN
     Indication: Product used for unknown indication
  24. MAGNESIUM [Concomitant]
     Active Substance: MAGNESIUM
     Indication: Product used for unknown indication
  25. MORPHINE [Concomitant]
     Active Substance: MORPHINE
     Indication: Product used for unknown indication
  26. ALBUTEROL [Concomitant]
     Active Substance: ALBUTEROL
     Indication: Product used for unknown indication
  27. LEVOTHYROXINE SODIUM [Concomitant]
     Active Substance: LEVOTHYROXINE SODIUM
     Indication: Product used for unknown indication
  28. RISEDRONATE SODIUM [Concomitant]
     Active Substance: RISEDRONATE SODIUM
     Indication: Product used for unknown indication
  29. PIROXICAM [Concomitant]
     Active Substance: PIROXICAM
     Indication: Product used for unknown indication
  30. MELOXICAM [Concomitant]
     Active Substance: MELOXICAM
     Indication: Product used for unknown indication
  31. ZESTRIL [Concomitant]
     Active Substance: LISINOPRIL
     Indication: Product used for unknown indication
  32. ERGOCALCIFEROL [Concomitant]
     Active Substance: ERGOCALCIFEROL
     Indication: Product used for unknown indication
  33. LANSOPRAZOLE [Concomitant]
     Active Substance: LANSOPRAZOLE
     Indication: Helicobacter infection
  34. FISH OIL [Concomitant]
     Active Substance: FISH OIL
     Indication: Product used for unknown indication
  35. GLUCOSAMINE [Concomitant]
     Active Substance: GLUCOSAMINE
     Indication: Product used for unknown indication

REACTIONS (137)
  - Anti-cyclic citrullinated peptide antibody positive [Fatal]
  - Hand deformity [Not Recovered/Not Resolved]
  - Glossodynia [Not Recovered/Not Resolved]
  - Muscle injury [Not Recovered/Not Resolved]
  - Infusion related reaction [Fatal]
  - Contraindicated product administered [Fatal]
  - Drug intolerance [Not Recovered/Not Resolved]
  - Duodenal ulcer perforation [Fatal]
  - Pemphigus [Not Recovered/Not Resolved]
  - Condition aggravated [Not Recovered/Not Resolved]
  - Fatigue [Not Recovered/Not Resolved]
  - Weight increased [Not Recovered/Not Resolved]
  - Gastrointestinal disorder [Not Recovered/Not Resolved]
  - Joint swelling [Not Recovered/Not Resolved]
  - Maternal exposure during pregnancy [Unknown]
  - Abdominal discomfort [Fatal]
  - Alopecia [Not Recovered/Not Resolved]
  - Discomfort [Fatal]
  - Helicobacter infection [Not Recovered/Not Resolved]
  - Hepatic enzyme increased [Fatal]
  - Rheumatoid arthritis [Not Recovered/Not Resolved]
  - Hip arthroplasty [Not Recovered/Not Resolved]
  - Knee arthroplasty [Not Recovered/Not Resolved]
  - Blister [Not Recovered/Not Resolved]
  - Hypersensitivity [Not Recovered/Not Resolved]
  - Rash [Not Recovered/Not Resolved]
  - Drug ineffective [Fatal]
  - Systemic lupus erythematosus [Not Recovered/Not Resolved]
  - Therapeutic product effect decreased [Fatal]
  - Wound [Not Recovered/Not Resolved]
  - Adverse event [Fatal]
  - Swelling [Not Recovered/Not Resolved]
  - Dyspnoea [Fatal]
  - Folliculitis [Not Recovered/Not Resolved]
  - Gait inability [Not Recovered/Not Resolved]
  - Impaired healing [Not Recovered/Not Resolved]
  - Infection [Fatal]
  - Irritable bowel syndrome [Fatal]
  - Lower respiratory tract infection [Not Recovered/Not Resolved]
  - Musculoskeletal stiffness [Not Recovered/Not Resolved]
  - Nasopharyngitis [Not Recovered/Not Resolved]
  - Pericarditis [Not Recovered/Not Resolved]
  - Peripheral swelling [Fatal]
  - Pruritus [Not Recovered/Not Resolved]
  - Pyrexia [Fatal]
  - Road traffic accident [Fatal]
  - Sinusitis [Not Recovered/Not Resolved]
  - Sleep disorder [Fatal]
  - Pain [Not Recovered/Not Resolved]
  - Migraine [Fatal]
  - Synovitis [Not Recovered/Not Resolved]
  - Off label use [Fatal]
  - Hypoaesthesia [Fatal]
  - Incorrect route of product administration [Fatal]
  - Loss of personal independence in daily activities [Not Recovered/Not Resolved]
  - Pulmonary fibrosis [Fatal]
  - Rheumatic fever [Fatal]
  - Sciatica [Fatal]
  - Blood cholesterol increased [Fatal]
  - Confusional state [Fatal]
  - Asthma [Not Recovered/Not Resolved]
  - Autoimmune disorder [Not Recovered/Not Resolved]
  - Decreased appetite [Fatal]
  - Deep vein thrombosis postoperative [Not Recovered/Not Resolved]
  - Lower limb fracture [Not Recovered/Not Resolved]
  - Joint range of motion decreased [Fatal]
  - Liver disorder [Fatal]
  - Malaise [Fatal]
  - Swollen joint count increased [Fatal]
  - Medication error [Fatal]
  - Psoriatic arthropathy [Fatal]
  - Arthralgia [Fatal]
  - Arthropathy [Fatal]
  - Contusion [Unknown]
  - Ill-defined disorder [Fatal]
  - Insomnia [Fatal]
  - Product use issue [Fatal]
  - Sleep disorder due to general medical condition, insomnia type [Unknown]
  - Stomatitis [Unknown]
  - Treatment failure [Fatal]
  - Urticaria [Fatal]
  - Prescribed underdose [Fatal]
  - Pneumonia [Fatal]
  - Retinitis [Unknown]
  - Thrombocytopenia [Fatal]
  - Osteoporosis [Unknown]
  - Red blood cell sedimentation rate increased [Unknown]
  - Tachycardia [Unknown]
  - Visual impairment [Unknown]
  - Breast cancer stage II [Fatal]
  - Dislocation of vertebra [Fatal]
  - Delirium [Fatal]
  - Lupus vulgaris [Fatal]
  - Type 2 diabetes mellitus [Fatal]
  - Amnesia [Fatal]
  - Dyspepsia [Fatal]
  - Asthenia [Fatal]
  - Depression [Fatal]
  - Dry mouth [Fatal]
  - General physical health deterioration [Fatal]
  - Grip strength decreased [Fatal]
  - Headache [Fatal]
  - Hypertension [Fatal]
  - Inflammation [Fatal]
  - Injury [Fatal]
  - Lip dry [Fatal]
  - Lung disorder [Fatal]
  - Muscle spasms [Fatal]
  - Musculoskeletal pain [Fatal]
  - Night sweats [Fatal]
  - Obesity [Fatal]
  - Osteoarthritis [Fatal]
  - Paraesthesia [Fatal]
  - Peripheral venous disease [Fatal]
  - Weight decreased [Fatal]
  - Wound infection [Fatal]
  - X-ray abnormal [Fatal]
  - Anxiety [Fatal]
  - Gait disturbance [Fatal]
  - Memory impairment [Fatal]
  - Adjustment disorder with depressed mood [Fatal]
  - Muscular weakness [Fatal]
  - Prescribed overdose [Fatal]
  - Crohn^s disease [Fatal]
  - Drug-induced liver injury [Fatal]
  - Lupus-like syndrome [Fatal]
  - Ear infection [Fatal]
  - Exostosis [Fatal]
  - Foot deformity [Fatal]
  - Hypercholesterolaemia [Fatal]
  - Joint dislocation [Fatal]
  - Laryngitis [Fatal]
  - Liver injury [Fatal]
  - Facet joint syndrome [Fatal]
  - Fibromyalgia [Fatal]
  - Product use in unapproved indication [Fatal]
  - Hepatic cirrhosis [Fatal]
